FAERS Safety Report 17552002 (Version 10)
Quarter: 2020Q3

REPORT INFORMATION
  Report Type: Report from Study
  Country: US (occurrence: US)
  Receive Date: 20200317
  Receipt Date: 20200821
  Transmission Date: 20201102
  Serious: Yes (Hospitalization, Other)
  Sender: FDA-Public Use
  Company Number: US-ACTELION-A-US2019-188140

PATIENT
  Age: 75 Year
  Sex: Female
  Weight: 52.15 kg

DRUGS (5)
  1. OPSUMIT [Suspect]
     Active Substance: MACITENTAN
     Indication: PULMONARY ARTERIAL HYPERTENSION
     Dosage: 10 MG, QD
     Route: 048
  2. TYVASO [Suspect]
     Active Substance: TREPROSTINIL
     Indication: PRODUCT USED FOR UNKNOWN INDICATION
     Dosage: EVERY 5 HOURS
     Route: 065
  3. SILDENAFIL. [Suspect]
     Active Substance: SILDENAFIL
     Indication: PRODUCT USED FOR UNKNOWN INDICATION
     Dosage: UNK
     Route: 065
     Dates: start: 201902, end: 201903
  4. FUROSEMIDE. [Concomitant]
     Active Substance: FUROSEMIDE
  5. LASIX [Concomitant]
     Active Substance: FUROSEMIDE

REACTIONS (29)
  - Hypotension [Unknown]
  - Chest discomfort [Unknown]
  - Bronchitis [Unknown]
  - Chronic kidney disease [Unknown]
  - Seasonal allergy [Unknown]
  - Dyspnoea [Not Recovered/Not Resolved]
  - Sputum discoloured [Unknown]
  - Rhinorrhoea [Unknown]
  - Blood pressure increased [Recovering/Resolving]
  - Asthenia [Unknown]
  - Headache [Unknown]
  - Decreased appetite [Unknown]
  - Dyspepsia [Unknown]
  - Influenza [Unknown]
  - Weight decreased [Unknown]
  - Arthralgia [Unknown]
  - Dry mouth [Unknown]
  - Burning sensation [Unknown]
  - Blood pressure systolic decreased [Unknown]
  - Secretion discharge [Unknown]
  - Insomnia [Unknown]
  - Paraesthesia [Unknown]
  - Cough [Unknown]
  - Unevaluable event [Unknown]
  - Fatigue [Unknown]
  - Oedema peripheral [Recovering/Resolving]
  - Productive cough [Unknown]
  - Dysphonia [Unknown]
  - Infection [Unknown]

NARRATIVE: CASE EVENT DATE: 20200608
